FAERS Safety Report 15021079 (Version 1)
Quarter: 2018Q2

REPORT INFORMATION
  Report Type: Spontaneous
  Country: US (occurrence: US)
  Receive Date: 20180618
  Receipt Date: 20180618
  Transmission Date: 20180711
  Serious: Yes (Other)
  Sender: FDA-Public Use
  Company Number: PHEH2018US023277

PATIENT
  Sex: Male

DRUGS (3)
  1. SANDOSTATIN [Suspect]
     Active Substance: OCTREOTIDE ACETATE
     Indication: DIARRHOEA
     Route: 065
  2. SUTENT [Suspect]
     Active Substance: SUNITINIB MALATE
     Indication: PANCREATIC NEUROENDOCRINE TUMOUR
     Dosage: 37.5 MG, QD
     Route: 065
     Dates: start: 201509
  3. COREG [Concomitant]
     Active Substance: CARVEDILOL
     Indication: PRODUCT USED FOR UNKNOWN INDICATION
     Route: 065

REACTIONS (10)
  - Oropharyngeal pain [Unknown]
  - Gastrointestinal pain [Unknown]
  - Headache [Unknown]
  - Blood pressure increased [Unknown]
  - Vision blurred [Unknown]
  - Drug hypersensitivity [Unknown]
  - Dry mouth [Unknown]
  - Vomiting [Unknown]
  - Drug ineffective [Unknown]
  - Dizziness [Unknown]
